FAERS Safety Report 10625206 (Version 1)
Quarter: 2014Q4

REPORT INFORMATION
  Report Type: Spontaneous
  Country: CH (occurrence: CH)
  Receive Date: 20141204
  Receipt Date: 20141204
  Transmission Date: 20150529
  Serious: Yes (Hospitalization)
  Sender: FDA-Public Use
  Company Number: PHHY2014CH157809

PATIENT
  Age: 29 Year
  Sex: Male

DRUGS (19)
  1. PHENOBARBITAL. [Interacting]
     Active Substance: PHENOBARBITAL
     Indication: EPILEPSY
     Dosage: 150 MG, UNK
     Route: 065
  2. PHENOBARBITAL. [Interacting]
     Active Substance: PHENOBARBITAL
     Dosage: 100 MG
     Route: 065
  3. TOPIRAMATE. [Interacting]
     Active Substance: TOPIRAMATE
     Indication: EPILEPSY
     Route: 065
  4. RUFINAMIDE [Interacting]
     Active Substance: RUFINAMIDE
     Indication: EPILEPSY
     Dosage: 2200 MG, QD
     Route: 065
  5. PERAMPANEL [Interacting]
     Active Substance: PERAMPANEL
     Indication: EPILEPSY
     Dosage: 2 MG, QD
     Route: 065
  6. PERAMPANEL [Interacting]
     Active Substance: PERAMPANEL
     Dosage: 8 MG, QD
     Route: 065
  7. CARBAMAZEPINE. [Suspect]
     Active Substance: CARBAMAZEPINE
     Indication: EPILEPSY
     Route: 065
  8. PHENOBARBITAL. [Interacting]
     Active Substance: PHENOBARBITAL
     Dosage: 3 DF, UNK
     Route: 065
  9. LACOSAMIDE [Suspect]
     Active Substance: LACOSAMIDE
     Indication: EPILEPSY
     Route: 065
  10. VALPROIC ACID. [Interacting]
     Active Substance: VALPROIC ACID
     Indication: EPILEPSY
     Route: 065
  11. ZONISAMIDE. [Interacting]
     Active Substance: ZONISAMIDE
     Indication: EPILEPSY
     Route: 065
  12. MEROPENEM. [Concomitant]
     Active Substance: MEROPENEM
     Indication: PNEUMONIA
     Route: 065
  13. AMOXICILLIN CLAVULANIC ACID [Concomitant]
     Active Substance: AMOXICILLIN\CLAVULANIC ACID
     Indication: PNEUMONIA
     Route: 065
  14. LEVETIRACETAM. [Interacting]
     Active Substance: LEVETIRACETAM
     Indication: EPILEPSY
     Route: 065
  15. PHENOBARBITAL. [Interacting]
     Active Substance: PHENOBARBITAL
     Dosage: 400 MG, QD
     Route: 065
  16. THIOPENTAL [Concomitant]
     Active Substance: THIOPENTAL
     Indication: PRODUCT USED FOR UNKNOWN INDICATION
     Route: 065
  17. PREGABALIN. [Interacting]
     Active Substance: PREGABALIN
     Indication: EPILEPSY
     Dosage: 450 MG, UNK
     Route: 065
  18. LAMOTRIGINE. [Interacting]
     Active Substance: LAMOTRIGINE
     Indication: EPILEPSY
     Route: 065
  19. PROPOFOL. [Concomitant]
     Active Substance: PROPOFOL
     Indication: PRODUCT USED FOR UNKNOWN INDICATION
     Route: 065

REACTIONS (6)
  - Incorrect dose administered [Unknown]
  - Drug ineffective [Unknown]
  - Tonic convulsion [Recovered/Resolved]
  - Drug level decreased [Unknown]
  - Status epilepticus [Recovered/Resolved]
  - Drug interaction [Unknown]
